FAERS Safety Report 7344438-1 (Version None)
Quarter: 2011Q1

REPORT INFORMATION
  Report Type: 
  Country: None (occurrence: None)
  Receive Date: 20110310
  Receipt Date: 20110110
  Transmission Date: 20110831
  Serious: No
  Sender: FDA-Public Use
  Company Number: A0904308A

PATIENT
  Sex: Male

DRUGS (2)
  1. NICOTINE [Suspect]
  2. NICORETTE (MINT) [Suspect]

REACTIONS (8)
  - MALAISE [None]
  - NICOTINE DEPENDENCE [None]
  - TONGUE DISCOLOURATION [None]
  - DIZZINESS [None]
  - ORAL PAIN [None]
  - ASTHENIA [None]
  - SOMNOLENCE [None]
  - SINUS HEADACHE [None]
